FAERS Safety Report 20323860 (Version 1)
Quarter: 2022Q1

REPORT INFORMATION
  Report Type: Spontaneous
  Country: US (occurrence: US)
  Receive Date: 20220111
  Receipt Date: 20220111
  Transmission Date: 20220423
  Serious: No
  Sender: FDA-Public Use
  Company Number: US-PFIZER INC-202101359846

PATIENT
  Age: 77 Year
  Sex: Female
  Weight: 64.41 kg

DRUGS (2)
  1. CHANTIX [Suspect]
     Active Substance: VARENICLINE TARTRATE
     Dosage: 0.5 MG
     Dates: start: 202105
  2. CHANTIX [Suspect]
     Active Substance: VARENICLINE TARTRATE
     Dosage: 1 MG

REACTIONS (5)
  - Drug ineffective [Unknown]
  - Body height decreased [Unknown]
  - Product packaging difficult to open [Unknown]
  - Irritability [Unknown]
  - Recalled product administered [Unknown]
